FAERS Safety Report 24543497 (Version 1)
Quarter: 2024Q4

REPORT INFORMATION
  Report Type: Spontaneous
  Country: US (occurrence: US)
  Receive Date: 20241024
  Receipt Date: 20241024
  Transmission Date: 20250115
  Serious: Yes (Other)
  Sender: ABBVIE
  Company Number: US-ABBVIE-5967226

PATIENT
  Sex: Female

DRUGS (2)
  1. INFED [Suspect]
     Active Substance: IRON DEXTRAN
     Indication: Iron deficiency anaemia
     Dosage: FORM STRENGTH: 50 MG
     Route: 065
  2. IRON SUCROSE [Concomitant]
     Active Substance: IRON SUCROSE
     Indication: Product used for unknown indication

REACTIONS (15)
  - Anaphylactic reaction [Recovered/Resolved]
  - Back pain [Recovered/Resolved]
  - Pulmonary congestion [Recovered/Resolved]
  - Tremor [Recovered/Resolved]
  - Swelling face [Not Recovered/Not Resolved]
  - Incorrect product formulation administered [Unknown]
  - Lacrimation increased [Recovered/Resolved]
  - Chest discomfort [Recovered/Resolved]
  - Swelling of eyelid [Unknown]
  - Hypoxia [Recovered/Resolved]
  - Seizure [Recovered/Resolved]
  - Laryngeal stenosis [Recovered/Resolved]
  - Uterine spasm [Recovered/Resolved]
  - Pulmonary pain [Recovered/Resolved]
  - Dyspnoea [Recovered/Resolved]
